FAERS Safety Report 13366740 (Version 1)
Quarter: 2017Q1

REPORT INFORMATION
  Report Type: Spontaneous
  Country: FR (occurrence: FR)
  Receive Date: 20170323
  Receipt Date: 20170323
  Transmission Date: 20170429
  Serious: Yes (Hospitalization)
  Sender: FDA-Public Use
  Company Number: FR-BAXTER-2017BAX011741

PATIENT
  Age: 77 Year
  Sex: Female

DRUGS (6)
  1. ENDOXAN 1000 MG, POUDRE POUR SOLUTION INJECTABLE [Suspect]
     Active Substance: CYCLOPHOSPHAMIDE
     Indication: BREAST CANCER
     Dosage: FIRST CYCLE
     Route: 042
     Dates: start: 20170105, end: 20170105
  2. ENDOXAN 1000 MG, POUDRE POUR SOLUTION INJECTABLE [Suspect]
     Active Substance: CYCLOPHOSPHAMIDE
     Dosage: SECOND CYCLE
     Route: 042
     Dates: start: 20170119, end: 20170119
  3. TAXOTERE [Suspect]
     Active Substance: DOCETAXEL
     Dosage: THIRD CYCLE
     Route: 042
     Dates: start: 20170209, end: 20170209
  4. TAXOTERE [Suspect]
     Active Substance: DOCETAXEL
     Dosage: SECOND CYCLE
     Route: 042
     Dates: start: 20170119, end: 20170119
  5. ENDOXAN 1000 MG, POUDRE POUR SOLUTION INJECTABLE [Suspect]
     Active Substance: CYCLOPHOSPHAMIDE
     Dosage: THIRD CYCLE
     Route: 042
     Dates: start: 20170209, end: 20170209
  6. TAXOTERE [Suspect]
     Active Substance: DOCETAXEL
     Indication: BREAST CANCER
     Dosage: FIRST CYCLE
     Route: 042
     Dates: start: 20170105, end: 20170105

REACTIONS (1)
  - Ischaemic stroke [Not Recovered/Not Resolved]

NARRATIVE: CASE EVENT DATE: 201702
